FAERS Safety Report 8986285 (Version 1)
Quarter: 2012Q4

REPORT INFORMATION
  Report Type: Spontaneous
  Country: US (occurrence: None)
  Receive Date: 20121219
  Receipt Date: 20121219
  Transmission Date: 20130627
  Serious: No
  Sender: FDA-Public Use
  Company Number: None

PATIENT
  Age: 64 Year
  Sex: Male
  Weight: 99.4 kg

DRUGS (2)
  1. TELAPREVIR [Suspect]
     Indication: HEPATITIS C
     Dosage: 750 MG TID PO
     Route: 048
     Dates: start: 20120819, end: 20121105
  2. RIBAVIRIN [Suspect]
     Indication: HEPATITIS C
     Dosage: 600 MG BID PO
     Route: 048
     Dates: start: 20121017

REACTIONS (6)
  - Dysphonia [None]
  - Productive cough [None]
  - Increased upper airway secretion [None]
  - Rhinorrhoea [None]
  - Fatigue [None]
  - Anaemia [None]
